FAERS Safety Report 6802939-6 (Version None)
Quarter: 2010Q2

REPORT INFORMATION
  Report Type: 
  Country: None (occurrence: None)
  Receive Date: 20100628
  Receipt Date: 20100621
  Transmission Date: 20101027
  Serious: Yes (Hospitalization, Other)
  Sender: FDA-Public Use
  Company Number: JP-JNJFOC-20100606125

PATIENT
  Age: 85 Year
  Sex: Female

DRUGS (3)
  1. MICONAZOLE NITRATE [Suspect]
  2. MICONAZOLE NITRATE [Suspect]
     Indication: DRUG USE FOR UNKNOWN INDICATION
  3. WARFARIN POTASSIUM [Interacting]
     Indication: ATRIAL FIBRILLATION
     Route: 065

REACTIONS (5)
  - ANAEMIA [None]
  - CARDIAC FAILURE [None]
  - DRUG INTERACTION [None]
  - INTERNATIONAL NORMALISED RATIO INCREASED [None]
  - SKIN HAEMORRHAGE [None]
